FAERS Safety Report 8236859-X (Version None)
Quarter: 2012Q1

REPORT INFORMATION
  Report Type: 
  Country: None (occurrence: None)
  Receive Date: 20120327
  Receipt Date: 20111130
  Transmission Date: 20120608
  Serious: Yes (Disabling)
  Sender: FDA-Public Use
  Company Number: US-GLAXOSMITHKLINE-A0956697A

PATIENT
  Age: 35 Year
  Sex: Female

DRUGS (4)
  1. CARBAMAZEPINE [Concomitant]
  2. KEPPRA [Concomitant]
     Dosage: 1000MG UNKNOWN
  3. VIMPAT [Concomitant]
  4. LAMICTAL [Suspect]
     Indication: CONVULSION
     Route: 048

REACTIONS (1)
  - PSYCHOTIC DISORDER [None]
